FAERS Safety Report 17075791 (Version 1)
Quarter: 2019Q4

REPORT INFORMATION
  Report Type: Spontaneous
  Country: JP (occurrence: JP)
  Receive Date: 20191126
  Receipt Date: 20191126
  Transmission Date: 20200122
  Serious: Yes (Other)
  Sender: FDA-Public Use
  Company Number: JP-PFIZER INC-2019502927

PATIENT
  Age: 1 Year
  Sex: Female

DRUGS (1)
  1. METHOTREXATE SODIUM. [Suspect]
     Active Substance: METHOTREXATE SODIUM
     Indication: ACUTE LYMPHOCYTIC LEUKAEMIA
     Dosage: UNK, CYCLIC
     Route: 037

REACTIONS (5)
  - Paraplegia [Recovered/Resolved]
  - Drug clearance decreased [Recovered/Resolved]
  - Product use issue [Unknown]
  - Myelitis [Recovered/Resolved]
  - Off label use [Unknown]
